FAERS Safety Report 21271016 (Version 1)
Quarter: 2022Q3

REPORT INFORMATION
  Report Type: Spontaneous
  Country: CH (occurrence: CH)
  Receive Date: 20220830
  Receipt Date: 20220830
  Transmission Date: 20221026
  Serious: Yes (Life-Threatening, Hospitalization, Other)
  Sender: FDA-Public Use
  Company Number: None

PATIENT
  Age: 49 Year
  Sex: Female

DRUGS (38)
  1. XANAX [Suspect]
     Active Substance: ALPRAZOLAM
     Dosage: 4 MG/DAY + 2X4MG IN RESERVE (TREATMENT AT HOME)
  2. LORAZEPAM [Suspect]
     Active Substance: LORAZEPAM
     Dosage: 3X1 MG IN RESERVE, AS NEEDED
  3. FENTANYL [Suspect]
     Active Substance: FENTANYL
     Dosage: 100 UG, 1X/HOUR + PATIENT-CONTROLLED ANALGESIA (PCA)
     Route: 062
     Dates: start: 20220601, end: 20220601
  4. FENTANYL [Suspect]
     Active Substance: FENTANYL
     Dosage: 50 UG, 1X/HOUR + PATIENT-CONTROLLED ANALGESIA (PCA)
     Route: 062
     Dates: start: 20220610, end: 20220712
  5. FENTANYL [Suspect]
     Active Substance: FENTANYL
     Dosage: 100 UG, 1X/HOUR + PATIENT-CONTROLLED ANALGESIA (PCA)
     Route: 062
     Dates: start: 20220713
  6. RIVOTRIL [Suspect]
     Active Substance: CLONAZEPAM
     Dosage: 0.5 MG, 3X/DAY
     Dates: start: 20220630
  7. CEFTRIAXONE [Concomitant]
     Active Substance: CEFTRIAXONE
     Indication: Infection
     Dosage: UNK
     Dates: start: 20220420, end: 20220607
  8. AMOXICILLIN\CLAVULANIC ACID [Concomitant]
     Active Substance: AMOXICILLIN\CLAVULANIC ACID
     Indication: Infection
     Dosage: UNK
     Dates: start: 20220530, end: 20220607
  9. PIPERACILLIN SODIUM\TAZOBACTAM SODIUM [Concomitant]
     Active Substance: PIPERACILLIN SODIUM\TAZOBACTAM SODIUM
     Indication: Infection
     Dosage: UNK
     Dates: start: 20220613, end: 20220626
  10. DAPTOMYCIN [Concomitant]
     Active Substance: DAPTOMYCIN
     Indication: Infection
     Dosage: UNK
     Route: 042
     Dates: start: 20220613, end: 20220621
  11. DAPTOMYCIN [Concomitant]
     Active Substance: DAPTOMYCIN
     Dosage: UNK
     Route: 042
     Dates: start: 20220805
  12. METRONIDAZOLE [Concomitant]
     Active Substance: METRONIDAZOLE
     Indication: Infection
     Dosage: UNK
     Route: 048
     Dates: start: 20220617, end: 20220706
  13. METRONIDAZOLE [Concomitant]
     Active Substance: METRONIDAZOLE
     Dosage: UNK
     Route: 048
     Dates: start: 20220805
  14. CEFEPIME [Concomitant]
     Active Substance: CEFEPIME HYDROCHLORIDE
     Indication: Infection
     Dosage: UNK
     Dates: start: 20220730, end: 20220802
  15. VANCOMYCIN [Concomitant]
     Active Substance: VANCOMYCIN
     Indication: Infection
     Dosage: UNK
     Dates: start: 20220730, end: 20220802
  16. ENOXAPARIN SODIUM [Concomitant]
     Active Substance: ENOXAPARIN SODIUM
     Dosage: HOME TREATMENT
  17. MORPHINE [Concomitant]
     Active Substance: MORPHINE
     Dosage: AS NEEDED
     Route: 048
  18. TIZANIDINE [Concomitant]
     Active Substance: TIZANIDINE
     Dosage: UNK
     Dates: start: 20220615
  19. DAFALGAN [Concomitant]
     Active Substance: ACETAMINOPHEN
     Dosage: HOME TREATMENT
  20. PREGABALIN [Concomitant]
     Active Substance: PREGABALIN
     Dosage: HOME TREATMENT
  21. CELEBREX [Concomitant]
     Active Substance: CELECOXIB
     Dosage: UNK
     Dates: start: 20220602
  22. MELATONIN [Concomitant]
     Active Substance: MELATONIN
     Dosage: UNK
     Dates: start: 20220615
  23. TRAZODONE HYDROCHLORIDE [Concomitant]
     Active Substance: TRAZODONE HYDROCHLORIDE
     Dosage: HOME TREATMENT
  24. NEXIUM [Concomitant]
     Active Substance: ESOMEPRAZOLE MAGNESIUM
     Dosage: HOME TREATMENT
  25. PROGESTERONE [Concomitant]
     Active Substance: PROGESTERONE
     Dosage: UNK
     Dates: start: 20220707
  26. ZOMIG [Concomitant]
     Active Substance: ZOLMITRIPTAN
     Dosage: 5 MG
     Dates: start: 20220604
  27. IMOVANE [Concomitant]
     Active Substance: ZOPICLONE
     Dosage: HOME TREATMENT
  28. VENTOLIN [Concomitant]
     Active Substance: ALBUTEROL SULFATE
     Dosage: AS NEEDED
  29. FOLIC ACID [Concomitant]
     Active Substance: FOLIC ACID
     Dosage: UNK
  30. CHOLECALCIFEROL [Concomitant]
     Active Substance: CHOLECALCIFEROL
     Dosage: UNK
  31. CALCIUM\CHOLECALCIFEROL [Concomitant]
     Active Substance: CALCIUM\CHOLECALCIFEROL
     Dosage: UNK
  32. VITAMIN B12 + FOLIC ACID [Concomitant]
     Dosage: UNK
  33. NICOTINELL [Concomitant]
     Active Substance: NICOTINE
     Dosage: HOME TREATMENT
     Route: 062
  34. ESTRADIOL [Concomitant]
     Active Substance: ESTRADIOL
     Dosage: UNK
     Route: 062
     Dates: start: 20220707
  35. FOSFOMYCIN SODIUM [Concomitant]
     Active Substance: FOSFOMYCIN SODIUM
     Dosage: UNK
     Route: 042
     Dates: start: 20220804
  36. SODIUM PICOSULFATE [Concomitant]
     Active Substance: SODIUM PICOSULFATE
     Dosage: HOME TREATMENT
  37. DROPERIDOL [Concomitant]
     Active Substance: DROPERIDOL
     Dosage: AS NEEDED
  38. ONDANSETRON [Concomitant]
     Active Substance: ONDANSETRON
     Dosage: AS NEEDED

REACTIONS (4)
  - Overdose [Unknown]
  - Respiratory arrest [Recovered/Resolved]
  - Cardio-respiratory arrest [Recovered/Resolved]
  - Anaphylactic reaction [Unknown]

NARRATIVE: CASE EVENT DATE: 20220805
